FAERS Safety Report 11294636 (Version 1)
Quarter: 2015Q3

REPORT INFORMATION
  Report Type: Spontaneous
  Country: US (occurrence: None)
  Receive Date: 20150722
  Receipt Date: 20150722
  Transmission Date: 20151125
  Serious: Yes (Other)
  Sender: FDA-Public Use
  Company Number: None

PATIENT
  Age: 61 Year
  Sex: Male
  Weight: 99.79 kg

DRUGS (2)
  1. RID LICE SHAMPOO BAYER [Suspect]
     Active Substance: PIPERONYL BUTOXIDE\PYRETHRUM EXTRACT
     Indication: LICE INFESTATION
  2. CENTRUM [Concomitant]
     Active Substance: VITAMINS

REACTIONS (1)
  - Hypersensitivity [None]
